FAERS Safety Report 7178775-0 (Version None)
Quarter: 2010Q4

REPORT INFORMATION
  Report Type: 
  Country: None (occurrence: None)
  Receive Date: 20101221
  Receipt Date: 20101221
  Transmission Date: 20110411
  Serious: Yes (Hospitalization)
  Sender: FDA-Public Use
  Company Number: MX-ROXANE LABORATORIES, INC.-2010-DE-07025GD

PATIENT
  Age: 22 Year
  Sex: Male

DRUGS (4)
  1. PREDNISONE [Suspect]
     Indication: SYSTEMIC LUPUS ERYTHEMATOSUS
     Dosage: 60 MG FOR 3 MONTHS, THEN TAPERED OVER 6 MONTHS, AVERAGE DOSAGE 20 MG DURING PREVIOUS 4 YEARS
  2. METHYLPREDNISOLONE [Suspect]
     Indication: SYSTEMIC LUPUS ERYTHEMATOSUS
     Dosage: MONTHLY PULSES
     Route: 042
  3. METHYLPREDNISOLONE [Suspect]
     Indication: GLOMERULONEPHRITIS
  4. CYCLOPHOSPHAMIDE [Concomitant]
     Indication: SYSTEMIC LUPUS ERYTHEMATOSUS

REACTIONS (3)
  - ARTHRALGIA [None]
  - OSTEOARTHRITIS [None]
  - OSTEONECROSIS [None]
